FAERS Safety Report 10208220 (Version 2)
Quarter: 2014Q3

REPORT INFORMATION
  Report Type: Spontaneous
  Country: US (occurrence: US)
  Receive Date: 20140530
  Receipt Date: 20140912
  Transmission Date: 20150326
  Serious: Yes (Life-Threatening, Hospitalization)
  Sender: FDA-Public Use
  Company Number: US-BAYER-2014-080842

PATIENT
  Age: 33 Year
  Sex: Female
  Weight: 72.56 kg

DRUGS (4)
  1. MIRENA [Suspect]
     Active Substance: LEVONORGESTREL
     Indication: CONTRACEPTION
     Dosage: 20 MCG/24HR, CONT
     Route: 015
     Dates: start: 20120726, end: 20130516
  2. ZOLOFT [Concomitant]
     Active Substance: SERTRALINE HYDROCHLORIDE
     Indication: ANXIETY
     Dosage: UNK
     Dates: start: 2012, end: 2014
  3. COLECALCIFEROL [Concomitant]
     Active Substance: CHOLECALCIFEROL
  4. SERTRALINE [Concomitant]
     Active Substance: SERTRALINE HYDROCHLORIDE

REACTIONS (11)
  - Emotional distress [None]
  - Stress [None]
  - Abdominal pain [None]
  - Abdominal pain lower [None]
  - Anhedonia [None]
  - Uterine perforation [None]
  - Affective disorder [None]
  - Injury [None]
  - Anxiety [None]
  - General physical health deterioration [None]
  - Infection [None]

NARRATIVE: CASE EVENT DATE: 20120726
